FAERS Safety Report 18787615 (Version 1)
Quarter: 2021Q1

REPORT INFORMATION
  Report Type: Other
  Country: US (occurrence: US)
  Receive Date: 20210125
  Receipt Date: 20210125
  Transmission Date: 20210419
  Serious: Yes (Other)
  Sender: FDA-Public Use
  Company Number: US-ACORDA-ACO_163964_2020

PATIENT
  Age: 74 Year
  Sex: Female

DRUGS (4)
  1. AMPYRA [Suspect]
     Active Substance: DALFAMPRIDINE
     Indication: MULTIPLE SCLEROSIS
  2. AMPYRA [Suspect]
     Active Substance: DALFAMPRIDINE
     Indication: GAIT DISTURBANCE
     Dosage: 10 MILLIGRAM, BID
     Route: 048
     Dates: start: 20140618
  3. AVONEX [Suspect]
     Active Substance: INTERFERON BETA-1A
     Indication: MULTIPLE SCLEROSIS
     Dosage: 30 MICROGRAM, WEEKLY
     Route: 030
  4. AVONEX [Suspect]
     Active Substance: INTERFERON BETA-1A
     Indication: MULTIPLE SCLEROSIS
     Dosage: 30 MICROGRAM, WEEKLY
     Route: 030

REACTIONS (14)
  - Visual impairment [Not Recovered/Not Resolved]
  - Oesophageal ulcer [Unknown]
  - Dyspnoea [Unknown]
  - Back pain [Unknown]
  - Weight decreased [Unknown]
  - Asthenia [Unknown]
  - Multiple sclerosis relapse [Unknown]
  - Road traffic accident [Recovered/Resolved]
  - Gastrooesophageal reflux disease [Unknown]
  - Fatigue [Unknown]
  - Vomiting [Unknown]
  - Peroneal nerve palsy [Unknown]
  - Deafness [Unknown]
  - Nausea [Unknown]

NARRATIVE: CASE EVENT DATE: 201912
